FAERS Safety Report 6069721-1 (Version None)
Quarter: 2009Q1

REPORT INFORMATION
  Report Type: 
  Country: None (occurrence: None)
  Receive Date: 20090209
  Receipt Date: 20090129
  Transmission Date: 20090719
  Serious: Yes (Death, Life-Threatening, Hospitalization, Other)
  Sender: FDA-Public Use
  Company Number: US-AMGEN-US223452

PATIENT
  Sex: Female
  Weight: 73.5 kg

DRUGS (4)
  1. ENBREL [Suspect]
     Indication: HEPATITIS ALCOHOLIC
     Route: 058
     Dates: start: 20070427, end: 20070501
  2. SPIRONOLACTONE [Concomitant]
     Route: 048
     Dates: start: 20070422
  3. VICON FORTE [Concomitant]
     Route: 048
     Dates: start: 20070422
  4. VITAMIN K [Concomitant]
     Route: 048
     Dates: start: 20070422

REACTIONS (2)
  - DEATH [None]
  - DISSEMINATED INTRAVASCULAR COAGULATION [None]
